FAERS Safety Report 7211016-4 (Version None)
Quarter: 2011Q1

REPORT INFORMATION
  Report Type: 
  Country: None (occurrence: None)
  Receive Date: 20110105
  Receipt Date: 20101229
  Transmission Date: 20110831
  Serious: Yes (Hospitalization)
  Sender: FDA-Public Use
  Company Number: B0692115A

PATIENT
  Age: 77 Year
  Sex: Female

DRUGS (2)
  1. DIAMICRON [Suspect]
     Indication: TYPE 2 DIABETES MELLITUS
     Dosage: 30MG PER DAY
     Route: 048
     Dates: start: 20081101, end: 20100803
  2. AVAGLIM [Suspect]
     Indication: TYPE 2 DIABETES MELLITUS
     Route: 048
     Dates: start: 20081101, end: 20100803

REACTIONS (3)
  - DIZZINESS [None]
  - HYPOGLYCAEMIA [None]
  - DISORIENTATION [None]
